FAERS Safety Report 8468847-2 (Version None)
Quarter: 2012Q2

REPORT INFORMATION
  Report Type: 
  Country: None (occurrence: None)
  Receive Date: 20120626
  Receipt Date: 20120531
  Transmission Date: 20120825
  Serious: No
  Sender: FDA-Public Use
  Company Number: US-BAYER-2012-055450

PATIENT
  Age: 48 Year
  Sex: Female
  Weight: 52 kg

DRUGS (4)
  1. ALEVE (CAPLET) [Suspect]
     Indication: ARTHRALGIA
     Dosage: UNK
     Route: 048
     Dates: start: 20120301, end: 20120301
  2. FISH OIL [Concomitant]
  3. MULTI-VITAMIN [Concomitant]
  4. ASPIRIN [Suspect]
     Indication: ANALGESIC THERAPY
     Dosage: 2 DF, UNK
     Route: 048
     Dates: start: 20120501

REACTIONS (2)
  - NO ADVERSE EVENT [None]
  - ARTHRALGIA [None]
